FAERS Safety Report 6176322-3 (Version None)
Quarter: 2009Q2

REPORT INFORMATION
  Report Type: 
  Country: None (occurrence: None)
  Receive Date: 20090501
  Receipt Date: 20080730
  Transmission Date: 20091009
  Serious: Yes (Hospitalization, Other)
  Sender: FDA-Public Use
  Company Number: DE-ALEXION-A200800088

PATIENT

DRUGS (4)
  1. SOLIRIS [Suspect]
     Indication: PAROXYSMAL NOCTURNAL HAEMOGLOBINURIA
     Dosage: 600 MG, UNK
     Route: 042
     Dates: start: 20080303
  2. FOLSAN [Concomitant]
     Dosage: 4 UNK, UNK
     Route: 048
     Dates: start: 20080214
  3. EXJADE [Concomitant]
     Dosage: 500 UNK, UNK
     Route: 048
     Dates: start: 20080114
  4. MENCEVAX [Concomitant]
     Indication: IMMUNISATION
     Dosage: UNK, SINGLE
     Dates: start: 20080215, end: 20080215

REACTIONS (2)
  - ACUTE MYELOID LEUKAEMIA [None]
  - NEUTROPENIA [None]
